FAERS Safety Report 11615019 (Version 1)
Quarter: 2015Q4

REPORT INFORMATION
  Report Type: Spontaneous
  Country: US (occurrence: None)
  Receive Date: 20151008
  Receipt Date: 20151008
  Transmission Date: 20160304
  Serious: Yes (Hospitalization)
  Sender: FDA-Public Use
  Company Number: None

PATIENT
  Age: 65 Year
  Sex: Female
  Weight: 57.4 kg

DRUGS (2)
  1. CYTARABINE. [Suspect]
     Active Substance: CYTARABINE
     Dates: end: 20150828
  2. ETOPOSIDE (VP-16) [Suspect]
     Active Substance: ETOPOSIDE
     Dates: end: 20150828

REACTIONS (9)
  - Gait disturbance [None]
  - Confusional state [None]
  - Urinary incontinence [None]
  - Encephalitis viral [None]
  - Dizziness [None]
  - Encephalopathy [None]
  - Musculoskeletal stiffness [None]
  - Infection [None]
  - Meningitis aseptic [None]

NARRATIVE: CASE EVENT DATE: 20151002
